FAERS Safety Report 10050072 (Version 1)
Quarter: 2014Q1

REPORT INFORMATION
  Report Type: Spontaneous
  Country: US (occurrence: None)
  Receive Date: 20140331
  Receipt Date: 20140331
  Transmission Date: 20141002
  Serious: Yes (Hospitalization)
  Sender: FDA-Public Use
  Company Number: None

PATIENT
  Age: 56 Year
  Sex: Female

DRUGS (6)
  1. EXJADE 500 MG NOVARTIS [Suspect]
     Route: 048
     Dates: start: 20130926
  2. OXYCONTIN [Concomitant]
  3. PHONERGANM [Concomitant]
  4. LECTULOSE [Concomitant]
  5. REGLAN [Concomitant]
  6. PROTONIX [Concomitant]

REACTIONS (1)
  - Therapy cessation [None]
